FAERS Safety Report 4728758-2 (Version None)
Quarter: 2005Q3

REPORT INFORMATION
  Report Type: 
  Country: None (occurrence: None)
  Receive Date: 20050729
  Receipt Date: 20050718
  Transmission Date: 20060218
  Serious: Yes (Hospitalization)
  Sender: FDA-Public Use
  Company Number: FR-GLAXOSMITHKLINE-B0388106A

PATIENT
  Age: 73 Year
  Sex: Female

DRUGS (11)
  1. AUGMENTIN '125' [Suspect]
     Indication: DRUG USE FOR UNKNOWN INDICATION
     Dosage: 3G PER DAY
     Route: 048
     Dates: end: 20050608
  2. ROVAMYCINE [Suspect]
     Dosage: 4.5MU PER DAY
     Route: 065
     Dates: end: 20050610
  3. TRIFLUCAN [Suspect]
     Dosage: 800MG PER DAY
     Route: 042
     Dates: start: 20050611, end: 20050612
  4. CAELYX [Suspect]
     Route: 065
     Dates: start: 20050601, end: 20050601
  5. CIFLOX [Suspect]
     Dosage: 1G PER DAY
     Route: 048
  6. ROCEPHIN [Suspect]
     Dosage: 1G PER DAY
     Route: 042
     Dates: start: 20050608
  7. LASILIX [Concomitant]
     Route: 065
  8. LEXOMIL [Concomitant]
     Route: 065
  9. TIORFAN [Concomitant]
     Route: 065
  10. SMECTA [Concomitant]
     Route: 065
  11. LOVENOX [Concomitant]
     Route: 065

REACTIONS (2)
  - BURNING SENSATION [None]
  - ERYTHEMA [None]
